FAERS Safety Report 25350991 (Version 1)
Quarter: 2025Q2

REPORT INFORMATION
  Report Type: Spontaneous
  Country: JP (occurrence: JP)
  Receive Date: 20250523
  Receipt Date: 20250523
  Transmission Date: 20250717
  Serious: Yes (Hospitalization, Disabling)
  Sender: NOVO NORDISK
  Company Number: JP-NOVOPROD-1413809

PATIENT
  Age: 58 Year
  Sex: Female

DRUGS (1)
  1. RYZODEG 70/30 [Suspect]
     Active Substance: INSULIN ASPART\INSULIN DEGLUDEC
     Indication: Type 2 diabetes mellitus
     Dosage: 70 IU, QD
     Route: 058

REACTIONS (1)
  - Hypoglycaemic encephalopathy [Recovered/Resolved with Sequelae]
